FAERS Safety Report 9830973 (Version 3)
Quarter: 2014Q1

REPORT INFORMATION
  Report Type: Spontaneous
  Country: JP (occurrence: JP)
  Receive Date: 20140120
  Receipt Date: 20140321
  Transmission Date: 20141002
  Serious: Yes (Hospitalization, Other)
  Sender: FDA-Public Use
  Company Number: PHHY2014JP005440

PATIENT
  Age: 38 Year
  Sex: Male
  Weight: 54 kg

DRUGS (3)
  1. GILENYA [Suspect]
     Indication: MULTIPLE SCLEROSIS
     Dosage: 0.5 MG, QD
     Route: 048
     Dates: start: 20131208, end: 20140108
  2. GILENYA [Suspect]
     Dosage: 0.5 MG, Q72H
     Route: 048
     Dates: start: 20140109, end: 20140114
  3. LIORESAL [Suspect]
     Dosage: 30 MG, UNK
     Route: 048
     Dates: start: 201311, end: 20140108

REACTIONS (7)
  - Convulsion [Recovered/Resolved]
  - Multiple sclerosis relapse [Recovered/Resolved]
  - Motor dysfunction [Unknown]
  - Muscle spasticity [Recovered/Resolved]
  - Muscular weakness [Unknown]
  - Central nervous system lesion [Recovered/Resolved]
  - Prescribed underdose [Unknown]
